FAERS Safety Report 17163826 (Version 1)
Quarter: 2019Q4

REPORT INFORMATION
  Report Type: Spontaneous
  Country: FR (occurrence: FR)
  Receive Date: 20191217
  Receipt Date: 20191217
  Transmission Date: 20200122
  Serious: Yes (Other)
  Sender: FDA-Public Use
  Company Number: NVSC2019FR068904

PATIENT
  Age: 6 Year
  Sex: Male

DRUGS (10)
  1. CYCLOSPORINE. [Suspect]
     Active Substance: CYCLOSPORINE
     Indication: NEPHROTIC SYNDROME
     Dosage: UNK, OVER 4 WEEKS
     Route: 042
  2. CYCLOSPORINE. [Suspect]
     Active Substance: CYCLOSPORINE
     Dosage: 5 MG/KG, QD, AFTER 3 TO 6 MONTHS
     Route: 048
  3. SULFAMETHOXAZOLE AND TRIMETHOPRIM [Concomitant]
     Active Substance: SULFAMETHOXAZOLE\TRIMETHOPRIM
     Indication: PROPHYLAXIS
     Dosage: UNK, QOD, FOR THE FIRST 6 MONTHS
     Route: 048
  4. PREDNISONE. [Suspect]
     Active Substance: PREDNISONE
     Indication: NEPHROTIC SYNDROME
     Dosage: 60 MG/M2, QD
     Route: 048
  5. CYCLOSPORINE. [Suspect]
     Active Substance: CYCLOSPORINE
     Dosage: 10 MG/KG, QD, AFTER THE FIRST MONTH
     Route: 048
  6. MYCOPHENOLATE MOFETIL. [Suspect]
     Active Substance: MYCOPHENOLATE MOFETIL
     Indication: NEPHROTIC SYNDROME
     Dosage: 1.2 G/M2, QD
     Route: 065
  7. PREDNISONE. [Suspect]
     Active Substance: PREDNISONE
     Dosage: 0.25 MG/KG, OVER 3 MONTHS
     Route: 048
  8. CYCLOPHOSPHAMIDE. [Suspect]
     Active Substance: CYCLOPHOSPHAMIDE
     Indication: NEPHROTIC SYNDROME
     Dosage: CUMULATIVE DOSE 150 MG/KG OVER 90 DAYS)
     Route: 065
  9. METHYLPREDNISOLONE. [Suspect]
     Active Substance: METHYLPREDNISOLONE
     Indication: NEPHROTIC SYNDROME
     Dosage: 250 MG/M2, ON DAYS 1, 2 AND 3
     Route: 065
  10. PEFLOXACIN [Concomitant]
     Active Substance: PEFLOXACIN
     Indication: ANTIBIOTIC THERAPY
     Dosage: 10 MG/KG, QD, AFTER 6 WEEKS
     Route: 065

REACTIONS (3)
  - Product use in unapproved indication [Unknown]
  - Leukopenia [Unknown]
  - Therapy partial responder [Unknown]
